FAERS Safety Report 4638411-1 (Version None)
Quarter: 2005Q2

REPORT INFORMATION
  Report Type: 
  Country: None (occurrence: None)
  Receive Date: 20050415
  Receipt Date: 20050321
  Transmission Date: 20051028
  Serious: Yes (Other)
  Sender: FDA-Public Use
  Company Number: 200510141GDS

PATIENT
  Age: 46 Year
  Sex: Female

DRUGS (5)
  1. NIMOTOP [Suspect]
     Indication: SUBARACHNOID HAEMORRHAGE
     Dosage: 10 ML, Q1HR, INTRAVENOUS
     Route: 042
     Dates: start: 20041207, end: 20041218
  2. PERFUSALGAN [Concomitant]
  3. VALIUM [Concomitant]
  4. POLYIONIC GLUCOSE [Concomitant]
  5. ZANTAC [Concomitant]

REACTIONS (2)
  - CATHETER RELATED COMPLICATION [None]
  - PHARMACEUTICAL PRODUCT COMPLAINT [None]
